FAERS Safety Report 13157358 (Version 1)
Quarter: 2017Q1

REPORT INFORMATION
  Report Type: Spontaneous
  Country: US (occurrence: US)
  Receive Date: 20170125
  Receipt Date: 20170125
  Transmission Date: 20170428
  Serious: No
  Sender: FDA-Public Use
  Company Number: None

PATIENT
  Age: 24 Year
  Sex: Female

DRUGS (1)
  1. ENBREL [Suspect]
     Active Substance: ETANERCEPT
     Indication: MYOCARDITIS INFECTIOUS
     Route: 058
     Dates: start: 20160728

REACTIONS (1)
  - Alopecia [None]

NARRATIVE: CASE EVENT DATE: 20170112
